FAERS Safety Report 11090066 (Version 11)
Quarter: 2018Q3

REPORT INFORMATION
  Report Type: Spontaneous
  Country: US (occurrence: US)
  Receive Date: 20150505
  Receipt Date: 20180703
  Transmission Date: 20181010
  Serious: Yes (Hospitalization, Other)
  Sender: FDA-Public Use
  Company Number: US-PFIZER INC-2015144304

PATIENT
  Age: 36 Year
  Sex: Female
  Weight: 47 kg

DRUGS (8)
  1. LYRICA [Suspect]
     Active Substance: PREGABALIN
     Indication: INTERVERTEBRAL DISC DEGENERATION
  2. SYNTHROID [Concomitant]
     Active Substance: LEVOTHYROXINE SODIUM
     Dosage: 1 DF, 1X/DAY (IN AM)
     Dates: start: 201611
  3. LYRICA [Suspect]
     Active Substance: PREGABALIN
     Indication: NERVE INJURY
     Dosage: 100 MG, FOUR TIMES DAILY
     Route: 048
     Dates: start: 197004
  4. LYRICA [Suspect]
     Active Substance: PREGABALIN
     Indication: PAIN IN EXTREMITY
     Dosage: 100 MG, FOUR TIMES DAILY
     Route: 048
  5. LYRICA [Suspect]
     Active Substance: PREGABALIN
     Indication: ARTHRALGIA
     Dosage: 100 MG, UNK
     Route: 048
  6. OXYCODONE/APAP [Concomitant]
     Active Substance: ACETAMINOPHEN\OXYCODONE HYDROCHLORIDE
     Indication: PAIN IN EXTREMITY
     Dosage: UNK, 4X/DAY (10 MG OXYCODONE AND 325 MG PARACETAMOL, EVERY 6 HOUR)
     Route: 048
     Dates: start: 197004
  7. CARVEDILOL. [Concomitant]
     Active Substance: CARVEDILOL
     Indication: CARDIAC DISORDER
     Dosage: 3.125 MG, 2X/DAY
     Dates: start: 201604
  8. OXYCODONE/APAP [Concomitant]
     Active Substance: ACETAMINOPHEN\OXYCODONE HYDROCHLORIDE
     Indication: BACK PAIN

REACTIONS (7)
  - Hip fracture [Not Recovered/Not Resolved]
  - Off label use [Unknown]
  - Fall [Unknown]
  - Intentional product use issue [Unknown]
  - Hypoacusis [Not Recovered/Not Resolved]
  - Drug ineffective [Unknown]
  - Vesical fistula [Not Recovered/Not Resolved]

NARRATIVE: CASE EVENT DATE: 197004
